FAERS Safety Report 4944613-7 (Version None)
Quarter: 2006Q1

REPORT INFORMATION
  Report Type: 
  Country: None (occurrence: None)
  Receive Date: 20060315
  Receipt Date: 20060306
  Transmission Date: 20060701
  Serious: Yes (Hospitalization, Other)
  Sender: FDA-Public Use
  Company Number: US-JNJFOC-20051100391

PATIENT
  Sex: Male
  Weight: 73.94 kg

DRUGS (15)
  1. REMICADE [Suspect]
     Dosage: TOTAL NUMBER OF INFUSIONS = 11
     Route: 042
  2. INH [Suspect]
     Indication: TUBERCULIN TEST POSITIVE
  3. IMURAN [Concomitant]
  4. ASACOL [Concomitant]
  5. PLAVIX [Concomitant]
  6. PROTONIX [Concomitant]
  7. ROWASA [Concomitant]
     Route: 054
  8. PREDNISONE [Concomitant]
  9. RIFAMPIN [Concomitant]
     Indication: TUBERCULOSIS
  10. PYRAZINAMIDE [Concomitant]
     Indication: TUBERCULOSIS
  11. ETHAMBUTOL [Concomitant]
     Indication: TUBERCULOSIS
  12. LISINOPRIL [Concomitant]
  13. LEXAPRO [Concomitant]
  14. RATAZEPINE [Concomitant]
  15. VYTORIN [Concomitant]

REACTIONS (9)
  - ARTERIAL BYPASS OPERATION [None]
  - ARTHRALGIA [None]
  - CEREBROVASCULAR ACCIDENT [None]
  - HEPATOTOXICITY [None]
  - MAJOR DEPRESSION [None]
  - PHLEBITIS SUPERFICIAL [None]
  - PRURITUS [None]
  - PULMONARY TUBERCULOSIS [None]
  - SPONDYLITIS [None]
